FAERS Safety Report 10222989 (Version 2)
Quarter: 2014Q2

REPORT INFORMATION
  Report Type: Spontaneous
  Country: JP (occurrence: JP)
  Receive Date: 20140607
  Receipt Date: 20140616
  Transmission Date: 20141212
  Serious: Yes (Other)
  Sender: FDA-Public Use
  Company Number: PHJP2014JP000845

PATIENT
  Sex: Male
  Weight: 2.46 kg

DRUGS (3)
  1. TEGRETOL TAB 200MG [Suspect]
     Dosage: 400 MG, DAILY
     Route: 064
  2. RITODRINE [Suspect]
     Route: 064
  3. ANAESTHETICS [Suspect]
     Route: 064

REACTIONS (3)
  - Premature baby [Unknown]
  - Low birth weight baby [Unknown]
  - Foetal exposure during pregnancy [Unknown]
